FAERS Safety Report 5857501-9 (Version None)
Quarter: 2008Q3

REPORT INFORMATION
  Report Type: 
  Country: None (occurrence: None)
  Receive Date: 20080826
  Receipt Date: 20080815
  Transmission Date: 20090109
  Serious: Yes (Other)
  Sender: FDA-Public Use
  Company Number: US-ROCHE-581413

PATIENT
  Sex: Female
  Weight: 71.2 kg

DRUGS (5)
  1. CAPECITABINE [Suspect]
     Dosage: 1500 MG IN AM AND 1500 MG IN PM
     Route: 048
  2. ANZEMET [Concomitant]
  3. PHENOBARBITAL TAB [Concomitant]
  4. SYNTHROID [Concomitant]
  5. XANAX [Concomitant]

REACTIONS (1)
  - DISEASE PROGRESSION [None]
